FAERS Safety Report 11044591 (Version 1)
Quarter: 2015Q2

REPORT INFORMATION
  Report Type: Spontaneous
  Country: GB (occurrence: None)
  Receive Date: 20150415
  Receipt Date: 20150415
  Transmission Date: 20150821
  Serious: Yes (Life-Threatening, Other)
  Sender: FDA-Public Use
  Company Number: AMAG201500289

PATIENT
  Sex: Male

DRUGS (10)
  1. HUMALOG [Concomitant]
     Active Substance: INSULIN LISPRO
  2. ATORVASTATIN (ATORVASTATIN CALCIUM) [Concomitant]
  3. DOXAZOSIN (DOXAZOSIN MESILATE) [Concomitant]
  4. LANSOPRAZOLE (LANSOPRAZOLE) [Concomitant]
     Active Substance: LANSOPRAZOLE
  5. ARANESP [Concomitant]
     Active Substance: DARBEPOETIN ALFA
  6. BENDROFLUAZIDE (BENDROFLUAZIDE) [Concomitant]
  7. RIENSO (FERUMOXYTOL) INJECTION [Suspect]
     Active Substance: FERUMOXYTOL
     Indication: ANAEMIA
     Dates: start: 20150310, end: 20150310
  8. NEBIVOLOL (NEBIVOLOL) (NEBIVOLOL) [Concomitant]
     Active Substance: NEBIVOLOL
  9. HUMULIN (INSULIN HUMAN, INSULIN HUMAN INJECTION, ISOPHANE) [Concomitant]
  10. ALLOPURINOL (ALLOPURINOL) [Concomitant]
     Active Substance: ALLOPURINOL

REACTIONS (5)
  - Tongue biting [None]
  - Tongue necrosis [None]
  - Circulatory collapse [None]
  - Cardiac arrest [None]
  - Tracheostomy [None]

NARRATIVE: CASE EVENT DATE: 20150310
